FAERS Safety Report 15551229 (Version 6)
Quarter: 2020Q3

REPORT INFORMATION
  Report Type: Spontaneous
  Country: FR (occurrence: FR)
  Receive Date: 20181025
  Receipt Date: 20200812
  Transmission Date: 20201102
  Serious: Yes (Hospitalization, Other)
  Sender: FDA-Public Use
  Company Number: FR-MYLANLABS-2018M1079837

PATIENT
  Age: 43 Year
  Sex: Male

DRUGS (10)
  1. QUETIAPINE. [Suspect]
     Active Substance: QUETIAPINE
     Dosage: UNK
     Route: 048
  2. VALIUM [Suspect]
     Active Substance: DIAZEPAM
     Indication: ALCOHOL WITHDRAWAL SYNDROME
     Dosage: 10 MILLIGRAM 8HOURS
     Route: 065
  3. VITAMIN B1 [Concomitant]
     Active Substance: THIAMINE HYDROCHLORIDE
     Indication: PRODUCT USED FOR UNKNOWN INDICATION
     Dosage: UNK
  4. DIAZEPAM. [Suspect]
     Active Substance: DIAZEPAM
     Indication: PRODUCT USED FOR UNKNOWN INDICATION
     Dosage: UNK
     Route: 065
  5. IMOVANE [Suspect]
     Active Substance: ZOPICLONE
     Indication: INSOMNIA
     Dosage: UNK
     Route: 065
  6. IMOVANE [Suspect]
     Active Substance: ZOPICLONE
     Dosage: 8 MILLIGRAM, QD
     Route: 065
  7. ZOPICLONE [Suspect]
     Active Substance: ZOPICLONE
     Indication: PRODUCT USED FOR UNKNOWN INDICATION
     Dosage: UNK
     Route: 065
  8. VALIUM [Suspect]
     Active Substance: DIAZEPAM
     Dosage: UNK
     Route: 065
     Dates: start: 20171106, end: 20171106
  9. QUETIAPINE. [Suspect]
     Active Substance: QUETIAPINE
     Indication: MENTAL DISORDER
     Dosage: 300 MILLIGRAM
     Route: 048
  10. QUETIAPINE. [Suspect]
     Active Substance: QUETIAPINE
     Dosage: UNK
     Route: 048
     Dates: start: 20171106

REACTIONS (14)
  - Agitation [Recovering/Resolving]
  - Confusional state [Recovering/Resolving]
  - Intentional overdose [Unknown]
  - Nystagmus [Recovered/Resolved]
  - Wernicke^s encephalopathy [Recovered/Resolved]
  - Alcohol poisoning [Unknown]
  - Altered state of consciousness [Recovered/Resolved]
  - Ataxia [Recovering/Resolving]
  - Intentional product misuse [Unknown]
  - Poisoning deliberate [Unknown]
  - Gamma-glutamyltransferase increased [Unknown]
  - Toxicity to various agents [Recovering/Resolving]
  - Drug abuse [Unknown]
  - Pneumonia aspiration [Unknown]

NARRATIVE: CASE EVENT DATE: 20171106
